FAERS Safety Report 25686327 (Version 1)
Quarter: 2025Q3

REPORT INFORMATION
  Report Type: Spontaneous
  Country: EU (occurrence: EU)
  Receive Date: 20250815
  Receipt Date: 20250815
  Transmission Date: 20251020
  Serious: Yes (Other)
  Sender: REGENERON
  Company Number: None

PATIENT
  Age: 87 Year
  Sex: Male

DRUGS (5)
  1. LIBTAYO [Suspect]
     Active Substance: CEMIPLIMAB-RWLC
     Indication: Squamous cell carcinoma of skin
     Route: 042
     Dates: start: 20250616, end: 20250616
  2. IRBESARTAN [Concomitant]
     Active Substance: IRBESARTAN
  3. ELIQUIS [Concomitant]
     Active Substance: APIXABAN
  4. CARDURA [Concomitant]
     Active Substance: DOXAZOSIN MESYLATE
  5. PANTOPRAZOLE SODIUM [Concomitant]
     Active Substance: PANTOPRAZOLE SODIUM

REACTIONS (2)
  - Azotaemia [Unknown]
  - Thrombocytopenia [Unknown]

NARRATIVE: CASE EVENT DATE: 20250630
